FAERS Safety Report 10196239 (Version 2)
Quarter: 2014Q2

REPORT INFORMATION
  Report Type: Spontaneous
  Country: TR (occurrence: TR)
  Receive Date: 20140527
  Receipt Date: 20140605
  Transmission Date: 20141212
  Serious: Yes (Hospitalization, Other)
  Sender: FDA-Public Use
  Company Number: TR-SA-2014SA063558

PATIENT
  Age: 23 Year
  Sex: Female
  Weight: 65 kg

DRUGS (10)
  1. FABRAZYME [Suspect]
     Indication: FABRY^S DISEASE
     Route: 042
     Dates: start: 20140328, end: 20140424
  2. PROTON PUMP INHIBITORS [Suspect]
     Indication: PRODUCT USED FOR UNKNOWN INDICATION
     Route: 048
     Dates: start: 2012, end: 20140424
  3. ALFAMET [Suspect]
     Indication: PRODUCT USED FOR UNKNOWN INDICATION
     Route: 065
     Dates: start: 2013, end: 20140424
  4. ROCALTROL [Suspect]
     Indication: PRODUCT USED FOR UNKNOWN INDICATION
     Route: 048
     Dates: start: 2014, end: 20140424
  5. CALCIUM CARBONATE/COLECALCIFEROL [Concomitant]
     Route: 048
  6. LERCANIDIPINE [Concomitant]
     Route: 048
  7. MOXONIDINE [Concomitant]
     Route: 048
  8. CARVEDILOL [Concomitant]
     Route: 048
  9. PREDNOL [Concomitant]
     Indication: PREMEDICATION
  10. AVIL [Concomitant]
     Indication: PREMEDICATION

REACTIONS (6)
  - Cholestasis [Unknown]
  - Hepatic enzyme increased [Unknown]
  - Swelling [Recovered/Resolved]
  - Skin exfoliation [Recovered/Resolved]
  - Rash pruritic [Recovered/Resolved]
  - Erythema [Recovered/Resolved]
